FAERS Safety Report 10185571 (Version 2)
Quarter: 2017Q3

REPORT INFORMATION
  Report Type: Spontaneous
  Country: FR (occurrence: FR)
  Receive Date: 20140521
  Receipt Date: 20170704
  Transmission Date: 20171127
  Serious: Yes (Other)
  Sender: FDA-Public Use
  Company Number: FR-ASTRAZENECA-2014SE33140

PATIENT
  Age: 23823 Day
  Sex: Female
  Weight: 56 kg

DRUGS (9)
  1. KARDEGIC [Suspect]
     Active Substance: ASPIRIN LYSINE
     Route: 048
  2. METFORMIN [Suspect]
     Active Substance: METFORMIN HYDROCHLORIDE
     Dosage: NON-ASTRAZENECA PRODUCT, 150 MG TWICE DAILY
     Route: 048
  3. ALFUZOSIN [Suspect]
     Active Substance: ALFUZOSIN
     Indication: BLADDER CATHETERISATION
     Route: 048
     Dates: start: 20140106
  4. IMOVANE [Suspect]
     Active Substance: ZOPICLONE
     Route: 048
  5. CRESTOR [Suspect]
     Active Substance: ROSUVASTATIN CALCIUM
     Route: 048
  6. ATARAX [Suspect]
     Active Substance: HYDROXYZINE HYDROCHLORIDE
     Route: 048
  7. SEROPLEX [Suspect]
     Active Substance: ESCITALOPRAM OXALATE
     Route: 048
  8. LEVOTHYROX [Suspect]
     Active Substance: LEVOTHYROXINE
     Route: 048
  9. APROVEL [Suspect]
     Active Substance: IRBESARTAN
     Route: 048

REACTIONS (4)
  - Nausea [Recovering/Resolving]
  - Nasal congestion [Recovering/Resolving]
  - Dyspepsia [Recovering/Resolving]
  - Fatigue [Recovering/Resolving]

NARRATIVE: CASE EVENT DATE: 20140114
